FAERS Safety Report 19600989 (Version 6)
Quarter: 2021Q4

REPORT INFORMATION
  Report Type: Report from Study
  Country: CO (occurrence: CO)
  Receive Date: 20210723
  Receipt Date: 20211201
  Transmission Date: 20220303
  Serious: Yes (Life-Threatening, Hospitalization, Other)
  Sender: FDA-Public Use
  Company Number: NVSC2021CO166706

PATIENT
  Sex: Female

DRUGS (3)
  1. KISQALI [Suspect]
     Active Substance: RIBOCICLIB
     Indication: Breast cancer metastatic
     Dosage: 600 MG, QD
     Route: 048
  2. KISQALI [Suspect]
     Active Substance: RIBOCICLIB
     Dosage: 400 MG, QD
     Route: 048
  3. FEMARA [Suspect]
     Active Substance: LETROZOLE
     Indication: Breast cancer
     Dosage: 2.5 MG, QD
     Route: 048

REACTIONS (14)
  - White blood cell count abnormal [Unknown]
  - Hepatotoxicity [Unknown]
  - Transaminases increased [Unknown]
  - Sinusitis [Unknown]
  - Pain [Unknown]
  - Inflammation [Unknown]
  - Neutropenia [Unknown]
  - White blood cell count decreased [Unknown]
  - Leukopenia [Unknown]
  - Dysphagia [Unknown]
  - Burning sensation [Unknown]
  - Decreased immune responsiveness [Unknown]
  - Nausea [Unknown]
  - Asthenia [Unknown]
